FAERS Safety Report 11144379 (Version 4)
Quarter: 2015Q3

REPORT INFORMATION
  Report Type: Spontaneous
  Country: US (occurrence: US)
  Receive Date: 20150526
  Receipt Date: 20150807
  Transmission Date: 20151125
  Serious: No
  Sender: FDA-Public Use
  Company Number: US-PFIZER INC-2015172577

PATIENT
  Age: 69 Year
  Sex: Female
  Weight: 87.75 kg

DRUGS (9)
  1. SUTENT [Suspect]
     Active Substance: SUNITINIB MALATE
     Indication: RENAL CANCER METASTATIC
     Dosage: 37.5 MG, DAILY (14 DAYS ON, 7 DAYS OFF)
     Route: 048
     Dates: start: 20150415
  2. SPIRONOLACTONE. [Concomitant]
     Active Substance: SPIRONOLACTONE
     Indication: HYPERTENSION
     Dosage: UNK
  3. CITALOPRAM [Concomitant]
     Active Substance: CITALOPRAM HYDROBROMIDE
     Dosage: UNK
  4. CALCIUM [Concomitant]
     Active Substance: CALCIUM
     Dosage: UNK
  5. TENORMIN [Concomitant]
     Active Substance: ATENOLOL
     Indication: HYPERTENSION
     Dosage: UNK
  6. COZAAR [Concomitant]
     Active Substance: LOSARTAN POTASSIUM
     Indication: HYPERTENSION
     Dosage: UNK
  7. HYDROCODONE BITARTRATE AND ACETAMINOPHEN [Concomitant]
     Active Substance: ACETAMINOPHEN\HYDROCODONE BITARTRATE
     Indication: CANCER PAIN
     Dosage: 10-325 MG 1-2 + 3 Q4-6, HOURS , AS NEEDED (HYDROCODONE 10, PARACETAMOL 325 MG; Q 4-6 HOURS PRN)
     Dates: start: 20150415
  8. PRILOSEC [Concomitant]
     Active Substance: OMEPRAZOLE MAGNESIUM
     Dosage: UNK
  9. FERROUS SULFATE [Concomitant]
     Active Substance: FERROUS SULFATE\FERROUS SULFATE, DRIED
     Dosage: UNK
     Dates: start: 20150511

REACTIONS (25)
  - Dry mouth [Unknown]
  - Crying [Unknown]
  - Dizziness [Unknown]
  - Skin exfoliation [Unknown]
  - Back pain [Not Recovered/Not Resolved]
  - Pain [Not Recovered/Not Resolved]
  - Skin lesion [Unknown]
  - Scratch [Unknown]
  - Eating disorder [Unknown]
  - Rash [Unknown]
  - Iron deficiency [Unknown]
  - Pruritus [Unknown]
  - Fatigue [Unknown]
  - Pigmentation disorder [Unknown]
  - Dysgeusia [Not Recovered/Not Resolved]
  - Oral pain [Unknown]
  - Stomatitis [Unknown]
  - Pain of skin [Unknown]
  - Musculoskeletal pain [Not Recovered/Not Resolved]
  - Constipation [Unknown]
  - Dyspepsia [Unknown]
  - Dry skin [Unknown]
  - Depression [Not Recovered/Not Resolved]
  - Decreased appetite [Unknown]
  - Erythema [Unknown]

NARRATIVE: CASE EVENT DATE: 2015
